FAERS Safety Report 14282908 (Version 1)
Quarter: 2017Q4

REPORT INFORMATION
  Report Type: Spontaneous
  Country: US (occurrence: US)
  Receive Date: 20171213
  Receipt Date: 20171213
  Transmission Date: 20180321
  Serious: No
  Sender: FDA-Public Use
  Company Number: US-PERNIX THERAPEUTICS-2017PT000118

PATIENT
  Sex: Female
  Weight: 72.56 kg

DRUGS (2)
  1. ZOHYDRO [Suspect]
     Active Substance: HYDROCODONE BITARTRATE
     Indication: BACK PAIN
     Dosage: 20 MG, ONCE OR TWICE A DAY
     Route: 048
     Dates: start: 2014, end: 2014
  2. ZOHYDRO [Suspect]
     Active Substance: HYDROCODONE BITARTRATE
     Indication: NECK PAIN

REACTIONS (1)
  - Illusion [Recovered/Resolved]

NARRATIVE: CASE EVENT DATE: 2014
